FAERS Safety Report 20051181 (Version 5)
Quarter: 2022Q2

REPORT INFORMATION
  Report Type: Spontaneous
  Country: CA (occurrence: CA)
  Receive Date: 20211110
  Receipt Date: 20220510
  Transmission Date: 20220720
  Serious: Yes (Hospitalization, Other)
  Sender: FDA-Public Use
  Company Number: CA-CELLTRION INC.-2021CA014978

PATIENT

DRUGS (13)
  1. INFLECTRA [Suspect]
     Active Substance: INFLIXIMAB-DYYB
     Indication: Colitis ulcerative
     Dosage: 1 DF 10 MG/KG AT 0,2,6 WEEKS THEN EVERY 8 WEEKS
     Route: 042
     Dates: start: 20211019
  2. INFLECTRA [Suspect]
     Active Substance: INFLIXIMAB-DYYB
     Dosage: 1 DF 10 MG/KG AT 0,2,6 WEEKS THEN EVERY 8 WEEKS
     Route: 042
     Dates: start: 20211029
  3. INFLECTRA [Suspect]
     Active Substance: INFLIXIMAB-DYYB
     Dosage: 10 MG/KG AT 0,2,6 WEEKS THEN EVERY 8 WEEKS
     Route: 042
     Dates: start: 20211112
  4. INFLECTRA [Suspect]
     Active Substance: INFLIXIMAB-DYYB
     Dosage: 10 MG/KG AT 0,2,6 WEEKS THEN EVERY 8 WEEKS
     Route: 042
     Dates: start: 20211210
  5. INFLECTRA [Suspect]
     Active Substance: INFLIXIMAB-DYYB
     Dosage: 10 MG/KG AT 0,2,6 WEEKS THEN EVERY 8 WEEKS
     Route: 042
     Dates: start: 20220202
  6. INFLECTRA [Suspect]
     Active Substance: INFLIXIMAB-DYYB
     Dosage: 10 MG/KG AT 0,2,6 WEEKS THEN EVERY 8 WEEKS
     Route: 042
     Dates: start: 20220421
  7. IRON [Concomitant]
     Active Substance: IRON
     Dosage: UNK
  8. PREDNISONE [Concomitant]
     Active Substance: PREDNISONE
     Indication: Colitis ulcerative
     Dosage: UNK
  9. PREDNISONE [Concomitant]
     Active Substance: PREDNISONE
     Indication: Colitis ulcerative
     Dosage: 50 MG, DIE X 1 WEEK THEN DECREASE BY 5MG PER WEEK UNTIL COMPLETE STOP
     Route: 048
  10. PREDNISONE [Concomitant]
     Active Substance: PREDNISONE
     Dosage: 5 MG, WEEKLY
     Route: 048
  11. SYNTHROID [Concomitant]
     Active Substance: LEVOTHYROXINE SODIUM
     Indication: Hypothyroidism
     Dosage: UNK
  12. SYNTHROID [Concomitant]
     Active Substance: LEVOTHYROXINE SODIUM
     Dosage: 1 DF, DOSAGE NOT AVAILABLE
  13. SOLU-MEDROL [Concomitant]
     Active Substance: METHYLPREDNISOLONE SODIUM SUCCINATE
     Dosage: UNK
     Route: 042

REACTIONS (9)
  - Condition aggravated [Unknown]
  - Phlebitis [Unknown]
  - Pulmonary embolism [Unknown]
  - COVID-19 [Not Recovered/Not Resolved]
  - Oropharyngeal pain [Recovered/Resolved]
  - Rhinorrhoea [Recovered/Resolved]
  - Pyrexia [Recovered/Resolved]
  - Alopecia [Not Recovered/Not Resolved]
  - Off label use [Unknown]

NARRATIVE: CASE EVENT DATE: 20210101
